FAERS Safety Report 6027474-7 (Version None)
Quarter: 2009Q1

REPORT INFORMATION
  Report Type: 
  Country: None (occurrence: None)
  Receive Date: 20090105
  Receipt Date: 20081224
  Transmission Date: 20090719
  Serious: Yes (Other)
  Sender: FDA-Public Use
  Company Number: JP-PFIZER INC-2008077655

PATIENT

DRUGS (5)
  1. GABAPEN [Suspect]
     Indication: NEURALGIA
     Dosage: 100 MG, 2X/DAY
     Route: 048
     Dates: start: 20070310, end: 20070312
  2. FERROMIA [Concomitant]
     Indication: IRON DEFICIENCY ANAEMIA
     Dosage: UNK
  3. LUVOX [Concomitant]
     Indication: NEURALGIA
     Dosage: 100 MG, 1X/DAY
     Dates: start: 20060814
  4. BIOFERMIN [Concomitant]
     Indication: ENTEROCOLITIS
     Dosage: UNK
  5. ALLEGRA [Concomitant]
     Dosage: UNK

REACTIONS (1)
  - HYPOAESTHESIA [None]
